FAERS Safety Report 7224231-0 (Version None)
Quarter: 2011Q1

REPORT INFORMATION
  Report Type: 
  Country: None (occurrence: None)
  Receive Date: 20110113
  Receipt Date: 20110110
  Transmission Date: 20110831
  Serious: Yes (Hospitalization, Disabling, Other)
  Sender: FDA-Public Use
  Company Number: US-AMGEN-USASP2011001794

PATIENT

DRUGS (2)
  1. CHEMOTHERAPEUTICS NOS [Concomitant]
  2. NEULASTA [Suspect]
     Indication: CHEMOTHERAPY
     Dates: start: 20100801

REACTIONS (9)
  - PAIN [None]
  - NEUROPATHY PERIPHERAL [None]
  - WALKING AID USER [None]
  - PERIPHERAL COLDNESS [None]
  - GAIT DISTURBANCE [None]
  - ACTIVITIES OF DAILY LIVING IMPAIRED [None]
  - PRESYNCOPE [None]
  - DYSSTASIA [None]
  - THROMBOSIS [None]
